FAERS Safety Report 9189998 (Version 1)
Quarter: 2013Q1

REPORT INFORMATION
  Report Type: Spontaneous
  Country: US (occurrence: US)
  Receive Date: 20130326
  Receipt Date: 20130326
  Transmission Date: 20140127
  Serious: No
  Sender: FDA-Public Use
  Company Number: US-PFIZER INC-2013093554

PATIENT
  Age: 66 Year
  Sex: Female
  Weight: 65.8 kg

DRUGS (2)
  1. ESTRING [Suspect]
     Indication: VULVOVAGINAL DRYNESS
     Dosage: UNK
     Route: 067
     Dates: start: 2011, end: 2013
  2. ESTRING [Suspect]
     Indication: VULVOVAGINAL DISCOMFORT

REACTIONS (1)
  - Drug ineffective [Unknown]
